FAERS Safety Report 7302818-4 (Version None)
Quarter: 2011Q1

REPORT INFORMATION
  Report Type: 
  Country: None (occurrence: None)
  Receive Date: 20110218
  Receipt Date: 20110207
  Transmission Date: 20110831
  Serious: Yes (Death)
  Sender: FDA-Public Use
  Company Number: US-CELGENEUS-163-21880-10122380

PATIENT
  Sex: Male

DRUGS (6)
  1. BUMEX [Concomitant]
     Route: 048
  2. DECADRON [Concomitant]
     Route: 048
  3. TOPROL-XL [Concomitant]
     Route: 048
  4. ASPIRIN [Concomitant]
     Route: 048
  5. VELCADE [Concomitant]
     Route: 065
  6. REVLIMID [Suspect]
     Indication: MULTIPLE MYELOMA
     Route: 048
     Dates: start: 20101101, end: 20100101

REACTIONS (1)
  - MULTIPLE MYELOMA [None]
